FAERS Safety Report 7502354-6 (Version None)
Quarter: 2011Q2

REPORT INFORMATION
  Report Type: 
  Country: None (occurrence: None)
  Receive Date: 20110525
  Receipt Date: 20110511
  Transmission Date: 20111010
  Serious: Yes (Other)
  Sender: FDA-Public Use
  Company Number: JP-JNJFOC-20110506328

PATIENT
  Age: 35 Year
  Sex: Male

DRUGS (9)
  1. REMICADE [Suspect]
     Route: 042
     Dates: start: 20080101
  2. CYCLOSPORINE [Suspect]
     Indication: BEHCET'S SYNDROME
     Dates: start: 20080101
  3. PREDNISOLONE [Concomitant]
     Indication: BEHCET'S SYNDROME
  4. REMICADE [Suspect]
     Indication: BEHCET'S SYNDROME
     Route: 042
  5. REMICADE [Suspect]
     Route: 042
     Dates: start: 20070301
  6. METHOTREXATE [Suspect]
     Indication: BEHCET'S SYNDROME
     Dates: start: 20081101
  7. REMICADE [Suspect]
     Route: 042
  8. METHOTREXATE [Suspect]
     Dates: start: 20100101
  9. COLCHICINE [Suspect]
     Indication: BEHCET'S SYNDROME

REACTIONS (3)
  - LUPUS-LIKE SYNDROME [None]
  - BEHCET'S SYNDROME [None]
  - POLYARTHRITIS [None]
